FAERS Safety Report 21706529 (Version 1)
Quarter: 2022Q4

REPORT INFORMATION
  Report Type: Report from Study
  Country: JP (occurrence: JP)
  Receive Date: 20221209
  Receipt Date: 20221209
  Transmission Date: 20230112
  Serious: Yes (Hospitalization)
  Sender: FDA-Public Use
  Company Number: JP-ORPHANEU-2019004246

PATIENT

DRUGS (8)
  1. CYSTADANE [Suspect]
     Active Substance: BETAINE
     Indication: Homocystinuria
     Dosage: 1.1G/DAY, TID
     Route: 048
     Dates: start: 20180515, end: 20180607
  2. CYSTADANE [Suspect]
     Active Substance: BETAINE
     Dosage: 1.4G/DAY, TID
     Route: 048
     Dates: start: 20180608, end: 20180619
  3. CYSTADANE [Suspect]
     Active Substance: BETAINE
     Dosage: 1.8G/DAY, TID
     Route: 048
     Dates: start: 20180620, end: 20180704
  4. CYSTADANE [Suspect]
     Active Substance: BETAINE
     Dosage: 2.5 G/DAY, TID
     Route: 048
     Dates: start: 20180705, end: 20180709
  5. CYSTADANE [Suspect]
     Active Substance: BETAINE
     Dosage: 2.5 G/DAY, BID
     Route: 048
     Dates: start: 20180710, end: 20200423
  6. CYSTADANE [Suspect]
     Active Substance: BETAINE
     Dosage: 3.0 G/DAY, BID
     Route: 048
     Dates: start: 20200424
  7. FOLIC ACID [Concomitant]
     Active Substance: FOLIC ACID
     Indication: Product used for unknown indication
     Dosage: 10 MILLIGRAM, BID
     Route: 048
     Dates: start: 20180711
  8. MASBLON [Concomitant]
     Indication: Product used for unknown indication
     Dosage: 1 MG, QD
     Dates: start: 20180515

REACTIONS (5)
  - Hydrocephalus [Recovering/Resolving]
  - Pharyngitis [Recovered/Resolved]
  - Pharyngitis [Recovered/Resolved]
  - Off label use [Recovered/Resolved]
  - Therapeutic product effect incomplete [Recovered/Resolved]

NARRATIVE: CASE EVENT DATE: 20180101
